FAERS Safety Report 12693054 (Version 1)
Quarter: 2016Q3

REPORT INFORMATION
  Report Type: Spontaneous
  Country: US (occurrence: None)
  Receive Date: 20160826
  Receipt Date: 20160826
  Transmission Date: 20161109
  Serious: Yes (Other)
  Sender: FDA-Public Use
  Company Number: None

PATIENT
  Age: 30 Year
  Weight: 74.84 kg

DRUGS (3)
  1. ZOLOFT [Suspect]
     Active Substance: SERTRALINE HYDROCHLORIDE
     Indication: ANGER
     Dates: end: 20160726
  2. IBUPROFEN. [Concomitant]
     Active Substance: IBUPROFEN
  3. ZOLOFT [Suspect]
     Active Substance: SERTRALINE HYDROCHLORIDE
     Indication: MOOD SWINGS
     Dates: end: 20160726

REACTIONS (4)
  - Alcohol use [None]
  - Impulsive behaviour [None]
  - Imprisonment [None]
  - Abnormal behaviour [None]

NARRATIVE: CASE EVENT DATE: 20160726
